FAERS Safety Report 5726624-7 (Version None)
Quarter: 2008Q2

REPORT INFORMATION
  Report Type: 
  Country: None (occurrence: None)
  Receive Date: 20080502
  Receipt Date: 20080422
  Transmission Date: 20081010
  Serious: Yes (Other)
  Sender: FDA-Public Use
  Company Number: US-JNJFOC-20080406297

PATIENT
  Age: 27 Year
  Sex: Female
  Weight: 77.11 kg

DRUGS (2)
  1. TOPAMAX [Suspect]
     Indication: MIGRAINE PROPHYLAXIS
     Dosage: 25 MG AM AND 50 MG PM
     Route: 048
  2. DEPO-PROVERA [Concomitant]
     Indication: CONTRACEPTION
     Route: 030

REACTIONS (6)
  - CONFUSIONAL STATE [None]
  - DELUSION [None]
  - DYSGEUSIA [None]
  - MOOD ALTERED [None]
  - PANIC ATTACK [None]
  - SOMNOLENCE [None]
